FAERS Safety Report 8338264-4 (Version None)
Quarter: 2012Q2

REPORT INFORMATION
  Report Type: 
  Country: None (occurrence: None)
  Receive Date: 20120504
  Receipt Date: 20120423
  Transmission Date: 20120825
  Serious: Yes (Hospitalization, Disabling)
  Sender: FDA-Public Use
  Company Number: US-MERCK-1104USA00795

PATIENT
  Age: 69 Year
  Sex: Female

DRUGS (12)
  1. FOSAMAX [Suspect]
     Route: 048
     Dates: start: 20001215, end: 20010809
  2. FOSAMAX [Suspect]
     Indication: OSTEOPENIA
     Route: 048
     Dates: start: 20040101, end: 20101201
  3. ALENDRONATE SODIUM [Suspect]
     Indication: OSTEOPOROSIS
     Route: 048
     Dates: start: 20080730
  4. FOSAMAX [Suspect]
     Indication: OSTEOPOROSIS
     Route: 048
     Dates: start: 20040101, end: 20101201
  5. FOSAMAX [Suspect]
     Route: 048
     Dates: start: 20061231, end: 20080120
  6. FOSAMAX [Suspect]
     Route: 048
     Dates: start: 20001215, end: 20010809
  7. ACTONEL [Suspect]
     Route: 065
     Dates: start: 20021025
  8. FOSAMAX [Suspect]
     Route: 048
     Dates: start: 20061231, end: 20080120
  9. ALENDRONATE SODIUM [Suspect]
     Route: 048
     Dates: start: 20090308, end: 20090607
  10. HORMONES (UNSPECIFIED) [Concomitant]
     Indication: HORMONE REPLACEMENT THERAPY
     Route: 065
     Dates: start: 19900101, end: 20030101
  11. ALENDRONATE SODIUM [Suspect]
     Indication: OSTEOPENIA
     Route: 048
     Dates: start: 20080730
  12. ALENDRONATE SODIUM [Suspect]
     Route: 048
     Dates: start: 20090308, end: 20090607

REACTIONS (37)
  - JOINT EFFUSION [None]
  - TIBIA FRACTURE [None]
  - RETINAL DETACHMENT [None]
  - OSTEOPENIA [None]
  - DRUG INTOLERANCE [None]
  - FEMUR FRACTURE [None]
  - ADVERSE DRUG REACTION [None]
  - ARTHRALGIA [None]
  - WEIGHT INCREASED [None]
  - OEDEMA PERIPHERAL [None]
  - FIBULA FRACTURE [None]
  - BENIGN NEOPLASM [None]
  - HIATUS HERNIA [None]
  - GLUCOSE TOLERANCE IMPAIRED [None]
  - BLOOD THYROID STIMULATING HORMONE DECREASED [None]
  - CATARACT [None]
  - HAEMORRHAGIC ANAEMIA [None]
  - MASS [None]
  - DIVERTICULUM INTESTINAL [None]
  - DEPRESSION [None]
  - ADENOMA BENIGN [None]
  - HAEMATOMA [None]
  - FALL [None]
  - INTERSTITIAL LUNG DISEASE [None]
  - DYSPEPSIA [None]
  - SERONEGATIVE ARTHRITIS [None]
  - GASTROOESOPHAGEAL REFLUX DISEASE [None]
  - COLITIS [None]
  - HYPERTRIGLYCERIDAEMIA [None]
  - HYPERTENSION [None]
  - OEDEMA [None]
  - LUNG NEOPLASM [None]
  - CELLULITIS [None]
  - GASTROINTESTINAL TRACT ADENOMA [None]
  - RHINITIS ALLERGIC [None]
  - LYMPHADENOPATHY [None]
  - JOINT SWELLING [None]
